FAERS Safety Report 13872726 (Version 4)
Quarter: 2017Q3

REPORT INFORMATION
  Report Type: Report from Study
  Country: NL (occurrence: NL)
  Receive Date: 20170816
  Receipt Date: 20170928
  Transmission Date: 20171127
  Serious: Yes (Hospitalization)
  Sender: FDA-Public Use
  Company Number: NL-PFIZER INC-2017343565

PATIENT
  Age: 48 Year
  Sex: Male
  Weight: 90.1 kg

DRUGS (9)
  1. LOSARTAN. [Concomitant]
     Active Substance: LOSARTAN
     Indication: HYPERTENSION
     Dosage: UNK
     Dates: start: 20170707
  2. AXITINIB [Suspect]
     Active Substance: AXITINIB
     Indication: RENAL CELL CARCINOMA
     Dosage: 10 MG, 2X/DAY
     Route: 048
     Dates: start: 20170712
  3. TAMSULOSIN [Concomitant]
     Active Substance: TAMSULOSIN
     Indication: BENIGN PROSTATIC HYPERPLASIA
     Dosage: UNK
     Dates: start: 20161227
  4. MOVICOLON [Concomitant]
     Active Substance: POLYETHYLENE GLYCOL 3350\POTASSIUM CHLORIDE\SODIUM BICARBONATE\SODIUM CHLORIDE
     Indication: CONSTIPATION
     Dosage: UNK
     Dates: start: 20170725
  5. OXAZEPAM. [Concomitant]
     Active Substance: OXAZEPAM
     Indication: TENSION
     Dosage: UNK
     Dates: start: 20170717
  6. TRAJENTA [Concomitant]
     Active Substance: LINAGLIPTIN
     Indication: TYPE 2 DIABETES MELLITUS
     Dosage: UNK
     Dates: start: 20161207
  7. ALLUPOL [Concomitant]
     Active Substance: ALLOPURINOL
     Indication: GOUT
     Dosage: UNK
     Dates: start: 20161205
  8. HYDROCHLOORTHIAZIDE [Concomitant]
     Active Substance: HYDROCHLOROTHIAZIDE
     Indication: HYPERTENSION
     Dosage: UNK
     Dates: start: 20170714
  9. AVELUMAB [Suspect]
     Active Substance: AVELUMAB
     Indication: RENAL CELL CARCINOMA
     Dosage: 900 MG, EVERY 2 WEEKS
     Route: 042
     Dates: start: 20170712

REACTIONS (1)
  - Bradycardia [Recovered/Resolved]

NARRATIVE: CASE EVENT DATE: 20170806
